FAERS Safety Report 9119298 (Version 2)
Quarter: 2013Q1

REPORT INFORMATION
  Report Type: Spontaneous
  Country: US (occurrence: US)
  Receive Date: 20130207
  Receipt Date: 20130313
  Transmission Date: 20140127
  Serious: No
  Sender: FDA-Public Use
  Company Number: US-009507513-1302USA002892

PATIENT
  Age: 44 Year
  Sex: Male
  Weight: 72.56 kg

DRUGS (5)
  1. CLARITIN-D 12 HOUR [Suspect]
     Indication: HYPERSENSITIVITY
     Dosage: 5 MG, PRN
     Route: 048
     Dates: start: 2004, end: 2013
  2. CLARITIN-D 12 HOUR [Suspect]
     Indication: RHINORRHOEA
     Dosage: UNK
  3. CLARITIN-D 12 HOUR [Suspect]
     Indication: SNEEZING
  4. ASPIRIN [Concomitant]
     Dosage: UNK, UNKNOWN
  5. ADVIL [Concomitant]
     Indication: PRODUCT USED FOR UNKNOWN INDICATION
     Dosage: UNK, UNKNOWN

REACTIONS (2)
  - Somnolence [Recovered/Resolved]
  - Drug ineffective [Unknown]
